FAERS Safety Report 25866549 (Version 2)
Quarter: 2025Q4

REPORT INFORMATION
  Report Type: Spontaneous
  Country: US (occurrence: US)
  Receive Date: 20250930
  Receipt Date: 20251106
  Transmission Date: 20260118
  Serious: Yes (Hospitalization)
  Sender: BIOGEN
  Company Number: US-BIOGEN-2025BI01325346

PATIENT
  Age: 53 Year
  Sex: Male

DRUGS (1)
  1. VUMERITY [Suspect]
     Active Substance: DIROXIMEL FUMARATE
     Indication: Multiple sclerosis
     Dates: start: 20240310, end: 20250908

REACTIONS (1)
  - Multiple sclerosis relapse [Not Recovered/Not Resolved]

NARRATIVE: CASE EVENT DATE: 20250801
